FAERS Safety Report 23438446 (Version 1)
Quarter: 2024Q1

REPORT INFORMATION
  Report Type: Spontaneous
  Country: US (occurrence: US)
  Receive Date: 20240124
  Receipt Date: 20240124
  Transmission Date: 20240410
  Serious: Yes (Other)
  Sender: FDA-Public Use
  Company Number: US-TEVA-VS-3148298

PATIENT
  Age: 68 Year

DRUGS (4)
  1. ADDERALL [Suspect]
     Active Substance: AMPHETAMINE ASPARTATE\AMPHETAMINE SULFATE\DEXTROAMPHETAMINE SACCHARATE\DEXTROAMPHETAMINE SULFATE
     Route: 065
  2. ADDERALL [Suspect]
     Active Substance: AMPHETAMINE ASPARTATE\AMPHETAMINE SULFATE\DEXTROAMPHETAMINE SACCHARATE\DEXTROAMPHETAMINE SULFATE
     Route: 065
  3. ADDERALL [Suspect]
     Active Substance: AMPHETAMINE ASPARTATE\AMPHETAMINE SULFATE\DEXTROAMPHETAMINE SACCHARATE\DEXTROAMPHETAMINE SULFATE
     Route: 065
  4. ADDERALL [Suspect]
     Active Substance: AMPHETAMINE ASPARTATE\AMPHETAMINE SULFATE\DEXTROAMPHETAMINE SACCHARATE\DEXTROAMPHETAMINE SULFATE
     Route: 065

REACTIONS (18)
  - Mast cell activation syndrome [Unknown]
  - Lymphoedema [Not Recovered/Not Resolved]
  - Connective tissue disorder [Not Recovered/Not Resolved]
  - Speech disorder [Not Recovered/Not Resolved]
  - Blood pressure increased [Unknown]
  - Polyuria [Unknown]
  - Fluid intake reduced [Unknown]
  - Quality of life decreased [Not Recovered/Not Resolved]
  - Joint effusion [Unknown]
  - Neuropathy peripheral [Not Recovered/Not Resolved]
  - Neuralgia [Unknown]
  - Drug ineffective [Unknown]
  - Syncope [Not Recovered/Not Resolved]
  - Feeling abnormal [Not Recovered/Not Resolved]
  - Postural orthostatic tachycardia syndrome [Unknown]
  - Hypervolaemia [Unknown]
  - Walking aid user [Not Recovered/Not Resolved]
  - Brain fog [Not Recovered/Not Resolved]
